FAERS Safety Report 6206823-0 (Version None)
Quarter: 2009Q2

REPORT INFORMATION
  Report Type: 
  Country: None (occurrence: None)
  Receive Date: 20090528
  Receipt Date: 20090521
  Transmission Date: 20091009
  Serious: Yes (Hospitalization)
  Sender: FDA-Public Use
  Company Number: AU-NOVOPROD-287513

PATIENT
  Age: 70 Year
  Sex: Male
  Weight: 100 kg

DRUGS (1)
  1. PROTAPHANE [Suspect]
     Indication: DIABETES MELLITUS

REACTIONS (1)
  - CEREBROVASCULAR ACCIDENT [None]
